FAERS Safety Report 8576673 (Version 2)
Quarter: 2014Q1

REPORT INFORMATION
  Report Type: Spontaneous
  Country: US (occurrence: None)
  Receive Date: 20120323
  Receipt Date: 20130305
  Transmission Date: 20141002
  Serious: Yes (Life-Threatening, Hospitalization, Disabling, Other)
  Sender: FDA-Public Use
  Company Number: 163-21880-11113019

PATIENT
  Age: 74 Year
  Sex: Female
  Weight: 94.8 kg

DRUGS (6)
  1. REVLIMID [Suspect]
     Indication: MYELODYSPLASTIC SYNDROME
     Dosage: 5 MG, 1 CAPSULE ALTERNATING W/2 CAPSULES DAILY, PO
     Route: 048
     Dates: start: 20110829
  2. EXJADE [Concomitant]
     Indication: MYELODYSPLASTIC SYNDROME
     Dosage: T TAB, ONCE DAILY, PO
     Route: 048
     Dates: start: 20111117
  3. BIAXIN (CLARITHROMYCIN) [Concomitant]
  4. CEFADROXIL [Concomitant]
  5. AMOXICILLIN [Concomitant]
  6. GUAIFENESIN/PHENYLEPHRINE (ENDAL) [Concomitant]

REACTIONS (8)
  - Rectal haemorrhage [None]
  - Anaemia [None]
  - Rash generalised [None]
  - Pulmonary embolism [None]
  - Back pain [None]
  - Hyperhidrosis [None]
  - Dyspnoea [None]
  - Pain [None]
